FAERS Safety Report 25458398 (Version 1)
Quarter: 2025Q2

REPORT INFORMATION
  Report Type: Spontaneous
  Country: AT (occurrence: AT)
  Receive Date: 20250620
  Receipt Date: 20250620
  Transmission Date: 20250717
  Serious: Yes (Life-Threatening, Hospitalization, Other)
  Sender: ALEXION PHARMACEUTICALS
  Company Number: AT-AstraZeneca-CH-00893534AM

PATIENT

DRUGS (1)
  1. DAPAGLIFLOZIN [Suspect]
     Active Substance: DAPAGLIFLOZIN
     Indication: Type 2 diabetes mellitus
     Dosage: 10 MILLIGRAM, QD
     Route: 065

REACTIONS (8)
  - Acidosis [Not Recovered/Not Resolved]
  - Loss of consciousness [Unknown]
  - Illness [Unknown]
  - Blood pressure abnormal [Unknown]
  - Blood pH increased [Unknown]
  - Gait disturbance [Unknown]
  - Musculoskeletal stiffness [Unknown]
  - Blood glucose abnormal [Unknown]
